FAERS Safety Report 24263122 (Version 3)
Quarter: 2024Q4

REPORT INFORMATION
  Report Type: Spontaneous
  Country: AR (occurrence: AR)
  Receive Date: 20240829
  Receipt Date: 20241223
  Transmission Date: 20250114
  Serious: Yes (Hospitalization, Other)
  Sender: GLAXOSMITHKLINE
  Company Number: AR-GLAXOSMITHKLINE-AR2024AMR072519

PATIENT

DRUGS (1)
  1. ZEJULA [Suspect]
     Active Substance: NIRAPARIB
     Indication: Product used for unknown indication
     Dosage: UNK

REACTIONS (6)
  - Lymphadenopathy [Unknown]
  - Pain [Unknown]
  - Ill-defined disorder [Unknown]
  - Disease recurrence [Unknown]
  - Influenza [Unknown]
  - Product dose omission issue [Unknown]
